FAERS Safety Report 16407611 (Version 3)
Quarter: 2020Q1

REPORT INFORMATION
  Report Type: Report from Study
  Country: US (occurrence: US)
  Receive Date: 20190609
  Receipt Date: 20200103
  Transmission Date: 20200409
  Serious: Yes (Other)
  Sender: FDA-Public Use
  Company Number: PHEH2019US024009

PATIENT
  Sex: Female

DRUGS (2)
  1. SANDOSTATIN LAR DEPOT [Suspect]
     Active Substance: OCTREOTIDE ACETATE
     Indication: ACROMEGALY
     Dosage: 40 MG, QMO (EVERY 28-35 DAYS)
     Route: 030
     Dates: start: 20150724
  2. SANDOSTATIN LAR DEPOT [Suspect]
     Active Substance: OCTREOTIDE ACETATE
     Indication: GIGANTISM

REACTIONS (8)
  - Seizure [Unknown]
  - Disturbance in attention [Unknown]
  - Sleep disorder [Unknown]
  - Constipation [Unknown]
  - Body temperature increased [Unknown]
  - Blood pressure increased [Unknown]
  - Menstruation irregular [Unknown]
  - Headache [Unknown]
